FAERS Safety Report 5346133-7 (Version None)
Quarter: 2007Q2

REPORT INFORMATION
  Report Type: 
  Country: None (occurrence: None)
  Receive Date: 20070601
  Receipt Date: 20070523
  Transmission Date: 20071010
  Serious: Yes (Death, Life-Threatening, Hospitalization)
  Sender: FDA-Public Use
  Company Number: 028-C5013-07031667

PATIENT
  Age: 56 Year
  Sex: Male

DRUGS (3)
  1. CC-5013 (LENALIDOMIDE) (CAPSULES) [Suspect]
     Indication: MULTIPLE MYELOMA
     Dosage: 15 MG, QD, ORAL
     Route: 048
     Dates: start: 20060628, end: 20070313
  2. DEXAMETHASONE TAB [Suspect]
     Indication: MULTIPLE MYELOMA
     Dates: start: 20060628
  3. DIPYRIDAMOLE [Concomitant]

REACTIONS (11)
  - CEREBRAL HAEMORRHAGE [None]
  - CEREBROVASCULAR ACCIDENT [None]
  - COMA [None]
  - DISEASE PROGRESSION [None]
  - EPISTAXIS [None]
  - FALL [None]
  - HAEMORRHAGE INTRACRANIAL [None]
  - HEAD INJURY [None]
  - PANCYTOPENIA [None]
  - PUPIL FIXED [None]
  - RENAL IMPAIRMENT [None]
